FAERS Safety Report 7062869-4 (Version None)
Quarter: 2010Q4

REPORT INFORMATION
  Report Type: 
  Country: None (occurrence: None)
  Receive Date: 20101026
  Receipt Date: 20100217
  Transmission Date: 20110411
  Serious: No
  Sender: FDA-Public Use
  Company Number: US-PFIZER INC-2010022224

PATIENT
  Sex: Male
  Weight: 111.1 kg

DRUGS (7)
  1. LIPITOR [Suspect]
     Indication: BLOOD TRIGLYCERIDES INCREASED
     Dosage: 10 MG, 1X/DAY
     Route: 048
     Dates: start: 20090101
  2. COENZYME Q10 [Suspect]
     Dosage: 100 MG, 1X/DAY
     Dates: start: 20100201
  3. RESVERATROL [Suspect]
     Dosage: 160 MG, 1X/DAY
     Dates: start: 20100201
  4. LISINOPRIL [Concomitant]
     Indication: HYPERTENSION
     Dosage: 10 MG, 1X/DAY
  5. HYTRIN [Concomitant]
     Indication: HYPERTENSION
     Dosage: 2 MG, 2X/DAY
  6. FLOVENT [Concomitant]
     Indication: CHRONIC OBSTRUCTIVE PULMONARY DISEASE
     Dosage: UNK
  7. FORADIL [Concomitant]
     Indication: CHRONIC OBSTRUCTIVE PULMONARY DISEASE
     Dosage: UNK

REACTIONS (1)
  - MALAISE [None]
